FAERS Safety Report 25576661 (Version 1)
Quarter: 2025Q3

REPORT INFORMATION
  Report Type: Spontaneous
  Country: EU (occurrence: EU)
  Receive Date: 20250718
  Receipt Date: 20250718
  Transmission Date: 20251020
  Serious: Yes (Other)
  Sender: AUROBINDO
  Company Number: EU-AFSSAPS-RS2025000678

PATIENT
  Age: 67 Year
  Sex: Female
  Weight: 50 kg

DRUGS (2)
  1. LEVOFLOXACIN [Suspect]
     Active Substance: LEVOFLOXACIN
     Indication: Mycobacterial infection
     Dosage: 500 MILLIGRAM, ONCE A DAY
     Route: 048
     Dates: start: 20230602, end: 20230809
  2. LINEZOLID [Suspect]
     Active Substance: LINEZOLID
     Indication: Mycobacterial infection
     Route: 048
     Dates: start: 20230612, end: 202403

REACTIONS (2)
  - Hepatic cytolysis [Recovered/Resolved]
  - Gamma-glutamyltransferase increased [Recovered/Resolved]

NARRATIVE: CASE EVENT DATE: 20230905
